FAERS Safety Report 8921367 (Version 1)
Quarter: 2012Q4

REPORT INFORMATION
  Report Type: 
  Country: GB (occurrence: GB)
  Receive Date: 20121122
  Receipt Date: 20121122
  Transmission Date: 20130627
  Serious: Yes (Other)
  Sender: FDA-Public Use
  Company Number: PHHY2012GB105650

PATIENT
  Age: 74 Year
  Sex: Male
  Weight: 86.7 kg

DRUGS (3)
  1. AMLODIPINE [Suspect]
     Indication: HYPERTENSION
     Dosage: 5 mg
     Route: 048
     Dates: start: 20090114
  2. PRAVASTATIN SODIUM [Suspect]
     Indication: BLOOD CHOLESTEROL INCREASED
     Dosage: 20 mg
     Route: 048
     Dates: start: 20101011, end: 20121017
  3. QUININE SULPHATE [Suspect]
     Indication: MUSCLE SPASMS
     Dosage: 300 mg
     Route: 048
     Dates: end: 20121018

REACTIONS (2)
  - Joint swelling [Recovered/Resolved]
  - Neck pain [Recovering/Resolving]
